FAERS Safety Report 13465751 (Version 1)
Quarter: 2017Q2

REPORT INFORMATION
  Report Type: Spontaneous
  Country: US (occurrence: US)
  Receive Date: 20170420
  Receipt Date: 20170420
  Transmission Date: 20170830
  Serious: Yes (Hospitalization)
  Sender: FDA-Public Use
  Company Number: None

PATIENT
  Age: 73 Year
  Sex: Male

DRUGS (1)
  1. LEVOFLOXACIN. [Suspect]
     Active Substance: LEVOFLOXACIN
     Indication: PROPHYLAXIS URINARY TRACT INFECTION
     Route: 048
     Dates: start: 20170224, end: 20170224

REACTIONS (8)
  - Attention deficit/hyperactivity disorder [None]
  - Complication associated with device [None]
  - Delirium [None]
  - Clostridium difficile colitis [None]
  - Confusional state [None]
  - Nitrite urine present [None]
  - Klebsiella test positive [None]
  - Pyuria [None]

NARRATIVE: CASE EVENT DATE: 20170323
